FAERS Safety Report 14435902 (Version 1)
Quarter: 2018Q1

REPORT INFORMATION
  Report Type: Spontaneous
  Country: US (occurrence: US)
  Receive Date: 20180124
  Receipt Date: 20180124
  Transmission Date: 20180509
  Serious: No
  Sender: FDA-Public Use
  Company Number: None

PATIENT
  Age: 53 Year
  Sex: Female
  Weight: 62.55 kg

DRUGS (9)
  1. PROGESTERONE CAPSULES 100 MG [Suspect]
     Active Substance: PROGESTERONE
     Indication: INSOMNIA
     Dosage: ?          QUANTITY:100 CAPSULE(S);?
     Route: 048
     Dates: start: 20180101, end: 20180120
  2. VTAMIN D [Concomitant]
  3. PROGESTERONE CAPSULES 100 MG [Suspect]
     Active Substance: PROGESTERONE
     Indication: HOT FLUSH
     Dosage: ?          QUANTITY:100 CAPSULE(S);?
     Route: 048
     Dates: start: 20180101, end: 20180120
  4. VITAMIN MK-7 [Concomitant]
  5. MAGNESIUM MALATE [Concomitant]
  6. KRILL OIL [Concomitant]
     Active Substance: DIETARY SUPPLEMENT
  7. DEXTROAMPHET SACCHARAT, AMPHET ASPARTATE, DEXTROAMPHET SULFATE AND AMPHET SULFAT [Concomitant]
     Active Substance: AMPHETAMINE ASPARTATE\AMPHETAMINE SULFATE\DEXTROAMPHETAMINE SACCHARATE\DEXTROAMPHETAMINE SULFATE
  8. GENERIC ORAL MICRONIZED PROGESTERONE [Concomitant]
  9. GLUCOSAMINE/CHONDROITIN [Concomitant]

REACTIONS (5)
  - Drug ineffective [None]
  - Insomnia [None]
  - Product substitution issue [None]
  - Hot flush [None]
  - Middle insomnia [None]

NARRATIVE: CASE EVENT DATE: 20180119
